FAERS Safety Report 5423726-X (Version None)
Quarter: 2007Q3

REPORT INFORMATION
  Report Type: 
  Country: None (occurrence: None)
  Receive Date: 20070727
  Receipt Date: 20060124
  Transmission Date: 20080115
  Serious: Yes (Hospitalization)
  Sender: FDA-Public Use
  Company Number: THYM-10860

PATIENT
  Age: 45 Year
  Sex: Male
  Weight: 79.8331 kg

DRUGS (12)
  1. THYMOGLOBULIN [Suspect]
     Indication: RENAL TRANSPLANT
     Dosage: 125 MG QD IV
     Route: 042
     Dates: start: 20060111, end: 20060111
  2. THYMOGLOBULIN [Suspect]
     Indication: RENAL TRANSPLANT
     Dosage: 75 MG QD IV
     Route: 042
     Dates: start: 20060112, end: 20060115
  3. PROGRAF [Concomitant]
  4. MYFORTIC [Concomitant]
  5. SEPTRA [Concomitant]
  6. MYCELEX [Concomitant]
  7. ASPIRIN [Concomitant]
  8. VALCYTE [Concomitant]
  9. PEPCID [Concomitant]
  10. LABETALOL HCL [Concomitant]
  11. CLONIDINE [Concomitant]
  12. NORVASC [Concomitant]

REACTIONS (1)
  - POSTOPERATIVE ILEUS [None]
